FAERS Safety Report 7230137-3 (Version None)
Quarter: 2011Q1

REPORT INFORMATION
  Report Type: 
  Country: None (occurrence: None)
  Receive Date: 20110118
  Receipt Date: 20110110
  Transmission Date: 20110831
  Serious: Yes (Other)
  Sender: FDA-Public Use
  Company Number: DE-AMGEN-DEUSP2011002041

PATIENT

DRUGS (5)
  1. ENBREL [Suspect]
     Indication: RHEUMATOID ARTHRITIS
  2. GLUCOCORTICOIDS [Concomitant]
     Dosage: 5 MG, UNK
  3. LEVOTHYROXINE SODIUM [Concomitant]
     Dosage: UNK
  4. ISOZID [Concomitant]
     Dosage: UNK
  5. ENBREL [Suspect]
     Indication: POLYARTHRITIS
     Dosage: 50 MG, WEEKLY
     Dates: start: 20100823

REACTIONS (3)
  - HEPATIC ENZYME INCREASED [None]
  - ABDOMINAL DISCOMFORT [None]
  - DYSPNOEA [None]
